FAERS Safety Report 9025876 (Version 1)
Quarter: 2013Q1

REPORT INFORMATION
  Report Type: Spontaneous
  Country: US (occurrence: None)
  Receive Date: 20130104
  Receipt Date: 20130104
  Transmission Date: 20140127
  Serious: Yes (Other)
  Sender: FDA-Public Use
  Company Number: VAL_01236_2013

PATIENT
  Sex: Female

DRUGS (2)
  1. LOPRESSOR [Suspect]
     Indication: HYPERTENSION
     Dosage: (DF)
  2. LOPRESSOR [Suspect]
     Indication: HEART RATE IRREGULAR
     Dosage: (DF)

REACTIONS (3)
  - Atrial fibrillation [None]
  - Product substitution issue [None]
  - Product formulation issue [None]
